FAERS Safety Report 9314448 (Version 1)
Quarter: 2013Q2

REPORT INFORMATION
  Report Type: Spontaneous
  Country: US (occurrence: US)
  Receive Date: 20130529
  Receipt Date: 20130529
  Transmission Date: 20140414
  Serious: No
  Sender: FDA-Public Use
  Company Number: US-PFIZER INC-2013160395

PATIENT
  Age: 90 Year
  Sex: Male

DRUGS (2)
  1. BOSULIF [Suspect]
     Dosage: 100MG DAILY ON ALTERNATE DAYS
  2. BOSULIF [Suspect]
     Dosage: 150MG DAILY ON ALTERNATE DAY

REACTIONS (2)
  - Arthralgia [Unknown]
  - Thrombocytopenia [Unknown]
